FAERS Safety Report 5761624-2 (Version None)
Quarter: 2008Q2

REPORT INFORMATION
  Report Type: 
  Country: None (occurrence: None)
  Receive Date: 20080606
  Receipt Date: 20080528
  Transmission Date: 20081010
  Serious: Yes (Hospitalization)
  Sender: FDA-Public Use
  Company Number: DE-PFIZER INC-2008015588

PATIENT
  Sex: Female
  Weight: 111 kg

DRUGS (9)
  1. SU-011,248 [Suspect]
     Indication: BREAST CANCER
     Route: 048
  2. DOCETAXEL [Suspect]
     Indication: BREAST CANCER
     Route: 042
  3. ALPHAGAN [Concomitant]
     Route: 047
  4. XALATAN [Concomitant]
     Route: 047
  5. LORZAAR PLUS [Concomitant]
     Route: 048
  6. PRAVASTATIN SODIUM [Concomitant]
     Route: 048
  7. BELOC ZOK [Concomitant]
     Route: 048
  8. ZOFRAN [Concomitant]
     Route: 048
     Dates: start: 20080206, end: 20080208
  9. FORTECORTIN [Concomitant]
     Route: 048
     Dates: start: 20080206, end: 20080208

REACTIONS (3)
  - ERYSIPELAS [None]
  - NEUTROPENIA [None]
  - PYREXIA [None]
